FAERS Safety Report 17799920 (Version 1)
Quarter: 2020Q2

REPORT INFORMATION
  Report Type: Spontaneous
  Country: CA (occurrence: CA)
  Receive Date: 20200518
  Receipt Date: 20200518
  Transmission Date: 20200714
  Serious: Yes (Other)
  Sender: FDA-Public Use
  Company Number: CA-009507513-2005CAN004350

PATIENT
  Age: 72 Year
  Sex: Female
  Weight: 81.65 kg

DRUGS (5)
  1. ATORVASTATIN [Concomitant]
     Active Substance: ATORVASTATIN
     Dosage: UNK
     Route: 065
  2. CELEBREX [Concomitant]
     Active Substance: CELECOXIB
     Dosage: UNK
     Route: 065
  3. FOSAVANCE [Suspect]
     Active Substance: ALENDRONATE SODIUM\CHOLECALCIFEROL
     Indication: OSTEOPOROSIS PROPHYLAXIS
     Dosage: 1.0 DOSAGE FORMS, 1 EVERY 1 DAYS
     Route: 048
  4. OLMESARTAN MEDOXOMIL. [Concomitant]
     Active Substance: OLMESARTAN MEDOXOMIL
     Dosage: UNK
     Route: 065
  5. TIAZAC XC [Concomitant]
     Active Substance: DILTIAZEM HYDROCHLORIDE
     Dosage: UNK
     Route: 065

REACTIONS (8)
  - Toothache [Recovering/Resolving]
  - Osteonecrosis of jaw [Recovering/Resolving]
  - Skin lesion [Recovering/Resolving]
  - Impaired healing [Recovering/Resolving]
  - Noninfective gingivitis [Recovering/Resolving]
  - Vision blurred [Recovering/Resolving]
  - Infection [Recovering/Resolving]
  - Visual impairment [Recovering/Resolving]
